FAERS Safety Report 7321536-X (Version None)
Quarter: 2011Q1

REPORT INFORMATION
  Report Type: 
  Country: None (occurrence: None)
  Receive Date: 20110228
  Receipt Date: 20100323
  Transmission Date: 20110831
  Serious: No
  Sender: FDA-Public Use
  Company Number: A0851616A

PATIENT
  Age: 35 Year
  Sex: Female

DRUGS (2)
  1. VALACYCLOVIR [Suspect]
     Indication: GENITAL HERPES
     Dosage: 500MG PER DAY
     Route: 048
     Dates: start: 20100101, end: 20100217
  2. PROAIR HFA [Concomitant]

REACTIONS (1)
  - HEART RATE INCREASED [None]
